FAERS Safety Report 11351733 (Version 1)
Quarter: 2015Q3

REPORT INFORMATION
  Report Type: Spontaneous
  Country: CA (occurrence: US)
  Receive Date: 20150807
  Receipt Date: 20150807
  Transmission Date: 20151125
  Serious: No
  Sender: FDA-Public Use
  Company Number: CA-JNJFOC-20150422631

PATIENT
  Age: 47 Year
  Sex: Male

DRUGS (3)
  1. ROGAINE EXTRA STRENGTH FOR FOAM UNSCENTED [Suspect]
     Active Substance: MINOXIDIL
     Route: 061
  2. ROGAINE EXTRA STRENGTH FOR FOAM UNSCENTED [Suspect]
     Active Substance: MINOXIDIL
     Indication: ALOPECIA
     Dosage: 1/2 CAPFUL
     Route: 061
  3. INSULIN [Concomitant]
     Active Substance: INSULIN NOS
     Indication: DIABETES MELLITUS
     Route: 065

REACTIONS (2)
  - Pruritus [Recovered/Resolved]
  - Erythema [Recovered/Resolved]
